FAERS Safety Report 8850171 (Version 1)
Quarter: 2012Q4

REPORT INFORMATION
  Report Type: 
  Country: JP (occurrence: JP)
  Receive Date: 20121019
  Receipt Date: 20121019
  Transmission Date: 20130627
  Serious: Yes (Hospitalization)
  Sender: FDA-Public Use
  Company Number: JP-GLAXOSMITHKLINE-B0765421A

PATIENT
  Age: 65 Year
  Sex: Female

DRUGS (1)
  1. VALTREX [Suspect]
     Indication: HERPES ZOSTER
     Dosage: 1000MG Three times per day
     Route: 048
     Dates: start: 20111108, end: 20111112

REACTIONS (8)
  - Renal failure acute [Recovered/Resolved]
  - Altered state of consciousness [Recovered/Resolved]
  - Nausea [Recovered/Resolved]
  - Gait disturbance [Recovered/Resolved]
  - Dyslalia [Recovered/Resolved]
  - Dysarthria [Recovered/Resolved]
  - Abnormal behaviour [Recovered/Resolved]
  - Toxic encephalopathy [Recovered/Resolved]
